FAERS Safety Report 8356243-8 (Version None)
Quarter: 2012Q2

REPORT INFORMATION
  Report Type: 
  Country: None (occurrence: None)
  Receive Date: 20120514
  Receipt Date: 20120503
  Transmission Date: 20120825
  Serious: Yes (Hospitalization)
  Sender: FDA-Public Use
  Company Number: US-US-EMD SERONO, INC.-7015258

PATIENT
  Sex: Female

DRUGS (2)
  1. REBIF [Suspect]
     Indication: MULTIPLE SCLEROSIS
     Dates: start: 20050101
  2. REBIF [Suspect]

REACTIONS (3)
  - MULTIPLE SCLEROSIS RELAPSE [None]
  - INFLUENZA LIKE ILLNESS [None]
  - NIGHT SWEATS [None]
